FAERS Safety Report 7238110-6 (Version None)
Quarter: 2011Q1

REPORT INFORMATION
  Report Type: 
  Country: None (occurrence: None)
  Receive Date: 20110121
  Receipt Date: 20110113
  Transmission Date: 20110831
  Serious: Yes (Hospitalization)
  Sender: FDA-Public Use
  Company Number: JP-SANOFI-AVENTIS-2011SA002464

PATIENT
  Age: 56 Year
  Sex: Female
  Weight: 50.7 kg

DRUGS (6)
  1. TAXOTERE [Suspect]
     Indication: BREAST CANCER
     Route: 041
     Dates: start: 20101018, end: 20101018
  2. CYCLOPHOSPHAMIDE [Suspect]
     Route: 065
     Dates: start: 20101108, end: 20101108
  3. CYCLOPHOSPHAMIDE [Suspect]
     Indication: BREAST CANCER
     Route: 065
     Dates: start: 20101018, end: 20101018
  4. TAXOTERE [Suspect]
     Route: 041
     Dates: start: 20101108, end: 20101108
  5. CYCLOPHOSPHAMIDE [Suspect]
     Route: 065
     Dates: start: 20101129, end: 20101129
  6. TAXOTERE [Suspect]
     Route: 041
     Dates: start: 20101129, end: 20101129

REACTIONS (1)
  - PULMONARY ARTERY THROMBOSIS [None]
